FAERS Safety Report 7052267-1 (Version None)
Quarter: 2010Q4

REPORT INFORMATION
  Report Type: 
  Country: None (occurrence: None)
  Receive Date: 20101019
  Receipt Date: 20101015
  Transmission Date: 20110411
  Serious: Yes (Hospitalization, Other)
  Sender: FDA-Public Use
  Company Number: DE-JNJCH-2010021552

PATIENT
  Sex: Female

DRUGS (1)
  1. REGAINE 2% [Suspect]
     Indication: PRODUCT USED FOR UNKNOWN INDICATION
     Dosage: TEXT:UNKNOWN
     Route: 061

REACTIONS (5)
  - APPLICATION SITE BURN [None]
  - APPLICATION SITE VESICLES [None]
  - CHEMICAL INJURY [None]
  - ERYTHEMA [None]
  - PRURITUS [None]
